FAERS Safety Report 23793373 (Version 1)
Quarter: 2024Q2

REPORT INFORMATION
  Report Type: Spontaneous
  Country: US (occurrence: US)
  Receive Date: 20240429
  Receipt Date: 20240429
  Transmission Date: 20240716
  Serious: No
  Sender: FDA-Public Use
  Company Number: US-HALEON-2168397

PATIENT
  Age: 4 Year
  Sex: Male
  Weight: 18.1 kg

DRUGS (1)
  1. CHILDRENS DIMETAPP COLD AND COUGH [Suspect]
     Active Substance: BROMPHENIRAMINE MALEATE\DEXTROMETHORPHAN HYDROBROMIDE\PHENYLEPHRINE HYDROCHLORIDE
     Indication: Product used for unknown indication
     Dosage: EXPDATE:202511
     Route: 048
     Dates: start: 20240411

REACTIONS (3)
  - Erythema [Unknown]
  - Accidental exposure to product [Unknown]
  - Product complaint [Unknown]

NARRATIVE: CASE EVENT DATE: 20240411
